FAERS Safety Report 11228663 (Version 1)
Quarter: 2015Q2

REPORT INFORMATION
  Report Type: Spontaneous
  Country: CH (occurrence: FR)
  Receive Date: 20150630
  Receipt Date: 20150630
  Transmission Date: 20150821
  Serious: Yes (Other)
  Sender: FDA-Public Use
  Company Number: CH-LPDUSPRD-20150485

PATIENT
  Age: 34 Year
  Sex: Female

DRUGS (1)
  1. FERINJECT [Suspect]
     Active Substance: FERRIC CARBOXYMALTOSE
     Dosage: 1000 MG
     Route: 041
     Dates: start: 20140804, end: 20140804

REACTIONS (5)
  - Infusion site swelling [Unknown]
  - Infusion site pain [Unknown]
  - Maternal exposure during pregnancy [Unknown]
  - Injection site discolouration [Unknown]
  - Extravasation [Unknown]

NARRATIVE: CASE EVENT DATE: 20140804
